FAERS Safety Report 16543935 (Version 1)
Quarter: 2019Q3

REPORT INFORMATION
  Report Type: Spontaneous
  Country: CA (occurrence: CA)
  Receive Date: 20190709
  Receipt Date: 20190709
  Transmission Date: 20191004
  Serious: Yes (Hospitalization)
  Sender: FDA-Public Use
  Company Number: CA-TEVA-2019-CA-1072550

PATIENT
  Age: 82 Year
  Sex: Female
  Weight: 75 kg

DRUGS (23)
  1. ATENOLOL TABLETS, BP [Concomitant]
     Active Substance: ATENOLOL
  2. PREGABALIN. [Concomitant]
     Active Substance: PREGABALIN
  3. SALBUTAMOL [Concomitant]
     Active Substance: ALBUTEROL
  4. MYRBETRIQ [Concomitant]
     Active Substance: MIRABEGRON
  5. SENNOSIDES. [Concomitant]
     Active Substance: SENNOSIDES
  6. NITROFURANTOIN. [Suspect]
     Active Substance: NITROFURANTOIN
     Route: 065
  7. MACROBID [Suspect]
     Active Substance: NITROFURANTOIN\NITROFURANTOIN MONOHYDRATE
     Indication: PROPHYLAXIS URINARY TRACT INFECTION
     Dosage: 100 MILLIGRAM DAILY;
     Route: 048
  8. NITROFURANTOIN. [Suspect]
     Active Substance: NITROFURANTOIN
     Route: 065
  9. PREDNISONE. [Concomitant]
     Active Substance: PREDNISONE
  10. TOVIAZ [Concomitant]
     Active Substance: FESOTERODINE FUMARATE
  11. ANORO ELLIPTA POWDER FOR ORAL INHALATION [Concomitant]
  12. CLOTRIMAZOLE. [Concomitant]
     Active Substance: CLOTRIMAZOLE
  13. NITROFURANTOIN. [Suspect]
     Active Substance: NITROFURANTOIN
     Route: 065
  14. NITROFURANTOIN. [Suspect]
     Active Substance: NITROFURANTOIN
     Route: 065
  15. NITROFURANTOIN. [Suspect]
     Active Substance: NITROFURANTOIN
     Route: 065
  16. CHLORTHALIDONE. [Concomitant]
     Active Substance: CHLORTHALIDONE
  17. CIPROFLOXACIN. [Concomitant]
     Active Substance: CIPROFLOXACIN
  18. GABAPENTIN. [Concomitant]
     Active Substance: GABAPENTIN
  19. NITROFURANTOIN. [Suspect]
     Active Substance: NITROFURANTOIN
     Route: 065
  20. NITROFURANTOIN. [Suspect]
     Active Substance: NITROFURANTOIN
     Route: 065
  21. PMS-NITROFURANTOIN [Suspect]
     Active Substance: NITROFURANTOIN
     Indication: PROPHYLAXIS URINARY TRACT INFECTION
     Dosage: 100 MILLIGRAM DAILY;
     Route: 048
  22. CEFPROZIL. [Concomitant]
     Active Substance: CEFPROZIL
  23. MYRBETRIQ [Concomitant]
     Active Substance: MIRABEGRON

REACTIONS (9)
  - Pulmonary granuloma [Unknown]
  - Malaise [Unknown]
  - Rales [Unknown]
  - Dysuria [Unknown]
  - Interstitial lung disease [Unknown]
  - Pyrexia [Unknown]
  - Cough [Unknown]
  - Hypoxia [Unknown]
  - Diarrhoea [Unknown]
